FAERS Safety Report 9407937 (Version 3)
Quarter: 2013Q3

REPORT INFORMATION
  Report Type: Spontaneous
  Country: US (occurrence: US)
  Receive Date: 20130718
  Receipt Date: 20130823
  Transmission Date: 20140515
  Serious: Yes (Other)
  Sender: FDA-Public Use
  Company Number: US-PFIZER INC-2013206486

PATIENT
  Age: 69 Year
  Sex: Female
  Weight: 51.7 kg

DRUGS (5)
  1. ESTRING [Suspect]
     Dosage: UNK
     Route: 067
     Dates: start: 2007, end: 20130711
  2. ESTRACE [Suspect]
     Indication: CYSTOCELE
     Dosage: UNK, WEEKLY
     Route: 067
     Dates: start: 2009
  3. ESTRACE [Suspect]
     Indication: RECTOCELE
  4. BIOTIN [Concomitant]
     Indication: HAIR DISORDER
     Dosage: UNK
  5. BIOTIN [Concomitant]
     Indication: NAIL DISORDER

REACTIONS (11)
  - Cystocele [Unknown]
  - Rectocele [Unknown]
  - Pancreatic cyst [Unknown]
  - Bladder prolapse [Unknown]
  - Uterine leiomyoma [Unknown]
  - Uterine polyp [Unknown]
  - Abdominal pain [Unknown]
  - Coccydynia [Recovered/Resolved]
  - Vaginal infection [Unknown]
  - Weight decreased [Recovering/Resolving]
  - Off label use [Unknown]
